FAERS Safety Report 14225209 (Version 4)
Quarter: 2018Q1

REPORT INFORMATION
  Report Type: Report from Study
  Country: None (occurrence: CR)
  Receive Date: 20171127
  Receipt Date: 20180329
  Transmission Date: 20180508
  Serious: Yes (Other)
  Sender: FDA-Public Use
  Company Number: CR-ABBVIE-17K-039-1895498-00

PATIENT
  Age: 37 Year
  Sex: Female

DRUGS (3)
  1. SULFASALAZINE. [Concomitant]
     Active Substance: SULFASALAZINE
     Indication: COLITIS ULCERATIVE
     Route: 048
     Dates: start: 201608
  2. HUMIRA [Suspect]
     Active Substance: ADALIMUMAB
     Indication: COLITIS ULCERATIVE
     Route: 058
     Dates: start: 201502, end: 2017
  3. HUMIRA [Suspect]
     Active Substance: ADALIMUMAB
     Route: 058
     Dates: start: 2017

REACTIONS (6)
  - Exposure during pregnancy [Unknown]
  - Failed in vitro fertilisation [Unknown]
  - Normal newborn [Unknown]
  - Colitis ulcerative [Recovering/Resolving]
  - Anal fistula [Recovering/Resolving]
  - Placental insufficiency [Recovered/Resolved]

NARRATIVE: CASE EVENT DATE: 201710
